FAERS Safety Report 4729888-1 (Version None)
Quarter: 2005Q3

REPORT INFORMATION
  Report Type: 
  Country: None (occurrence: None)
  Receive Date: 20050728
  Receipt Date: 20050720
  Transmission Date: 20060218
  Serious: Yes (Hospitalization)
  Sender: FDA-Public Use
  Company Number: TCI2005A03173

PATIENT
  Age: 73 Year
  Sex: Male

DRUGS (9)
  1. ACTOS [Suspect]
     Indication: DIABETES MELLITUS
     Dosage: 15 MG (15 MG,  1 D) PER ORAL
     Route: 048
     Dates: start: 20050404, end: 20050516
  2. CODEINE PHOSPHATE [Suspect]
     Dosage: PER ORAL
     Route: 048
  3. SAIBOKU-TOU (SAIBOKU-TO) [Suspect]
     Dosage: PER ORAL
     Route: 048
  4. RABEPRAZOLE SODIUM [Suspect]
     Dosage: PER ORAL
     Route: 048
  5. MEILAX  (ETHYL LOFLAZEPATE) [Concomitant]
     Dosage: PER ORAL
     Route: 048
  6. KIPRES (MONTELUKAST SODIUM) [Suspect]
     Dosage: PER ORAL
  7. ATELEC (CLINIDIPINE) [Concomitant]
  8. FLIVAS (NAFTOPIDIL) [Concomitant]
  9. METHYCOBAL (MECOBALAMIN) [Concomitant]

REACTIONS (6)
  - ASTHENIA [None]
  - CHEST X-RAY ABNORMAL [None]
  - FALL [None]
  - GAIT DISTURBANCE [None]
  - HYPOXIA [None]
  - PNEUMONITIS [None]
